FAERS Safety Report 18189904 (Version 2)
Quarter: 2022Q4

REPORT INFORMATION
  Report Type: Spontaneous
  Country: US (occurrence: US)
  Receive Date: 20200824
  Receipt Date: 20221003
  Transmission Date: 20230112
  Serious: No
  Sender: FDA-Public Use
  Company Number: US-NOVARTISTESTPH-NVSC2020US231754

PATIENT
  Sex: Female

DRUGS (1)
  1. VIVELLE-DOT [Suspect]
     Active Substance: ESTRADIOL
     Indication: Product used for unknown indication
     Dosage: 0.5 MG, Q2W
     Route: 062

REACTIONS (5)
  - Fall [Unknown]
  - Ligament sprain [Unknown]
  - Stress [Unknown]
  - Asthma [Unknown]
  - Product adhesion issue [Unknown]
